FAERS Safety Report 20175648 (Version 1)
Quarter: 2021Q4

REPORT INFORMATION
  Report Type: Spontaneous
  Country: US (occurrence: None)
  Receive Date: 20211209
  Receipt Date: 20211209
  Transmission Date: 20220304
  Serious: Yes (Disabling)
  Sender: FDA-Public Use
  Company Number: None

PATIENT
  Age: 64 Year
  Sex: Female
  Weight: 68.4 kg

DRUGS (10)
  1. VALSARTAN [Suspect]
     Active Substance: VALSARTAN
     Indication: Hypertension
     Dosage: OTHER QUANTITY : 27 TABLET(S);?
     Route: 048
     Dates: start: 20211201, end: 20211206
  2. AMLODIPINE [Concomitant]
     Active Substance: AMLODIPINE BESYLATE
  3. LEVOTHYROXINE [Concomitant]
     Active Substance: LEVOTHYROXINE
  4. MONTELUKAST [Concomitant]
     Active Substance: MONTELUKAST SODIUM
  5. CELECOXIB [Concomitant]
     Active Substance: CELECOXIB
  6. GABAPENTIN [Concomitant]
     Active Substance: GABAPENTIN
  7. METHOCARBAMOL [Concomitant]
     Active Substance: METHOCARBAMOL
  8. HYDROXYZINE [Concomitant]
     Active Substance: HYDROXYZINE HYDROCHLORIDE
  9. MULTIVITAMIN [Concomitant]
  10. VITAMIN B12 [Concomitant]
     Active Substance: CYANOCOBALAMIN

REACTIONS (6)
  - Muscle spasms [None]
  - Muscle spasms [None]
  - Abdominal pain [None]
  - Product physical issue [None]
  - Self-medication [None]
  - Product lot number issue [None]

NARRATIVE: CASE EVENT DATE: 20211207
